FAERS Safety Report 6275458-6 (Version None)
Quarter: 2009Q3

REPORT INFORMATION
  Report Type: 
  Country: None (occurrence: None)
  Receive Date: 20090721
  Receipt Date: 20090706
  Transmission Date: 20100115
  Serious: Yes (Other)
  Sender: FDA-Public Use
  Company Number: FR-PFIZER INC-2009237088

PATIENT
  Age: 9 Year

DRUGS (1)
  1. ZARONTIN [Suspect]
     Dosage: 1 UNK, UNK
     Dates: start: 20090611

REACTIONS (2)
  - ALOPECIA [None]
  - DECREASED APPETITE [None]
